FAERS Safety Report 4952437-X (Version None)
Quarter: 2006Q1

REPORT INFORMATION
  Report Type: 
  Country: None (occurrence: None)
  Receive Date: 20060323
  Receipt Date: 20060209
  Transmission Date: 20060701
  Serious: Yes (Death, Hospitalization, Other)
  Sender: FDA-Public Use
  Company Number: US-MERCK-0602USA02440

PATIENT
  Age: 69 Year
  Sex: Female
  Weight: 100 kg

DRUGS (23)
  1. VIOXX [Suspect]
     Indication: PAIN IN EXTREMITY
     Route: 048
     Dates: start: 20020101, end: 20040201
  2. ENALAPRIL MALEATE [Concomitant]
     Route: 065
  3. DIFLUCAN [Concomitant]
     Route: 065
  4. SEREVENT [Concomitant]
     Route: 065
  5. QUININE [Concomitant]
     Route: 065
  6. NEUTRA-PHOS [Concomitant]
     Route: 065
  7. ULTRAM [Concomitant]
     Route: 065
  8. METOCLOPRAMIDE HYDROCHLORIDE [Concomitant]
     Route: 065
  9. KRISTALOSE [Concomitant]
     Route: 065
  10. AMOXICILLIN [Concomitant]
     Route: 065
  11. CHROMAGEN CAPSULES [Concomitant]
     Route: 065
  12. IRON (UNSPECIFIED) [Concomitant]
     Route: 065
  13. PRILOSEC [Concomitant]
     Route: 065
  14. BIOTIN [Concomitant]
     Route: 065
  15. DOCUSATE SODIUM [Concomitant]
     Route: 065
  16. FAMOTIDINE [Concomitant]
     Route: 065
  17. ALLEGRA [Concomitant]
     Route: 065
  18. TRAMADOL HYDROCHLORIDE [Concomitant]
     Route: 065
  19. DIAZEPAM [Concomitant]
     Route: 065
  20. BIAXIN [Concomitant]
     Route: 065
  21. HYOSCYAMINE [Concomitant]
     Route: 065
  22. [THERAPY UNSPECIFIED] [Concomitant]
     Route: 065
  23. [THERAPY UNSPECIFIED] [Concomitant]
     Route: 065

REACTIONS (10)
  - ARRHYTHMIA [None]
  - CARDIAC OUTPUT DECREASED [None]
  - CARDIOMYOPATHY [None]
  - CEREBROVASCULAR ACCIDENT [None]
  - CHRONIC OBSTRUCTIVE PULMONARY DISEASE [None]
  - DIABETES MELLITUS [None]
  - HYPERTENSION [None]
  - ISCHAEMIA [None]
  - MYOCARDIAL INFARCTION [None]
  - RENAL FAILURE CHRONIC [None]
